FAERS Safety Report 14109347 (Version 1)
Quarter: 2017Q4

REPORT INFORMATION
  Report Type: Spontaneous
  Country: AU (occurrence: AU)
  Receive Date: 20171019
  Receipt Date: 20171019
  Transmission Date: 20180321
  Serious: Yes (Other)
  Sender: FDA-Public Use
  Company Number: AU-009507513-1710AUS009076

PATIENT
  Sex: Female

DRUGS (4)
  1. ADVANTAN [Suspect]
     Active Substance: METHYLPREDNISOLONE ACEPONATE
     Dosage: UNK
     Dates: start: 20161127
  2. NOVASONE [Suspect]
     Active Substance: MOMETASONE FUROATE
     Dosage: UNK
     Dates: end: 20161127
  3. ELOCON [Suspect]
     Active Substance: MOMETASONE FUROATE
  4. HYDROCORTISONE. [Suspect]
     Active Substance: HYDROCORTISONE
     Dosage: UNK
     Dates: start: 20161127

REACTIONS (1)
  - Steroid withdrawal syndrome [Not Recovered/Not Resolved]
